FAERS Safety Report 6309440-7 (Version None)
Quarter: 2009Q3

REPORT INFORMATION
  Report Type: 
  Country: None (occurrence: None)
  Receive Date: 20090811
  Receipt Date: 20090528
  Transmission Date: 20100115
  Serious: No
  Sender: FDA-Public Use
  Company Number: 1000006526

PATIENT
  Age: 42 Year
  Sex: Female

DRUGS (6)
  1. SAVELLA [Suspect]
     Indication: FIBROMYALGIA
     Dosage: 12.5 MG (12.5 MG,1 IN 1 D), ORAL
     Route: 048
     Dates: start: 20090522, end: 20090523
  2. SAVELLA [Suspect]
     Indication: FIBROMYALGIA
     Dosage: 25 MG (12.5 MG, 2 IN 1 D), ORAL
     Route: 048
     Dates: start: 20090524, end: 20090527
  3. LYRICA [Concomitant]
  4. HYDROCODONE [Concomitant]
  5. ZOLOFT [Concomitant]
  6. AMBIEN [Concomitant]

REACTIONS (2)
  - EAR CONGESTION [None]
  - HEADACHE [None]
